FAERS Safety Report 9170572 (Version 1)
Quarter: 2013Q1

REPORT INFORMATION
  Report Type: Spontaneous
  Country: US (occurrence: None)
  Receive Date: 20130308
  Receipt Date: 20130308
  Transmission Date: 20140127
  Serious: No
  Sender: FDA-Public Use
  Company Number: 001484666A

PATIENT
  Age: 18 Year
  Sex: Female

DRUGS (5)
  1. PROACTIV RENEWING CLEANSER [Suspect]
     Indication: ACNE
     Dosage: IBCE DAUKT DERNAK
     Dates: start: 20130205, end: 20130206
  2. PROACTIV REPAIRING TREATMENT [Suspect]
     Indication: ACNE
     Dosage: ONCE DAILY DERMAL
     Dates: start: 20130205, end: 20130206
  3. BENZOYL PEROXIDE CLEANSING [Suspect]
     Indication: ACNE
     Dosage: ONCE DAILY DERMAL
     Dates: start: 20130205, end: 20130206
  4. BENZOYL PEROXIDE\SULFUR [Suspect]
     Indication: ACNE
     Dosage: ONCE DAILY DERMAL
     Dates: start: 20130205, end: 20130206
  5. PROACTIV ADVANCED BLEMISH TREATMENT [Suspect]
     Indication: ACNE
     Dosage: ONCE DAILY DERMAL
     Dates: start: 20130205, end: 20130206

REACTIONS (3)
  - Swelling face [None]
  - Eye swelling [None]
  - Lip swelling [None]
